FAERS Safety Report 13754986 (Version 1)
Quarter: 2017Q3

REPORT INFORMATION
  Report Type: Spontaneous
  Country: SI (occurrence: SI)
  Receive Date: 20170714
  Receipt Date: 20170714
  Transmission Date: 20171127
  Serious: Yes (Hospitalization, Disabling, Other)
  Sender: FDA-Public Use
  Company Number: SI-AMGEN-SVNSP2017105402

PATIENT
  Age: 77 Year
  Sex: Female

DRUGS (6)
  1. KALCIJEV KARBONAT [Concomitant]
     Dosage: 1 G, QD
  2. ALPHA D3 [Concomitant]
     Dosage: 1 DF, QD
  3. PROLIA [Suspect]
     Active Substance: DENOSUMAB
     Indication: OSTEOPOROSIS
     Dosage: 60 MG, Q6MO
     Route: 058
     Dates: start: 20141209, end: 20170626
  4. GLIVEC [Concomitant]
     Active Substance: IMATINIB MESYLATE
     Dosage: 3 TBL. IN THE MORNINGS
  5. SEEBRI BREEZHALER [Concomitant]
     Active Substance: GLYCOPYRROLATE
     Dosage: 1 DF, QD
  6. ALOPURINOL [Concomitant]
     Active Substance: ALLOPURINOL
     Dosage: 100 MG, BID
     Route: 048

REACTIONS (1)
  - Atypical fracture [Unknown]

NARRATIVE: CASE EVENT DATE: 20170625
